FAERS Safety Report 19920109 (Version 2)
Quarter: 2021Q4

REPORT INFORMATION
  Report Type: Spontaneous
  Country: JP (occurrence: JP)
  Receive Date: 20211005
  Receipt Date: 20211124
  Transmission Date: 20220303
  Serious: Yes (Other)
  Sender: FDA-Public Use
  Company Number: JP-PFIZER INC-202101242521

PATIENT

DRUGS (2)
  1. INLYTA [Suspect]
     Active Substance: AXITINIB
     Dosage: UNK
     Dates: start: 20210906
  2. BAVENCIO [Concomitant]
     Active Substance: AVELUMAB
     Dosage: UNK
     Dates: start: 20210906

REACTIONS (1)
  - Hepatic function abnormal [Recovered/Resolved]
